FAERS Safety Report 8990950 (Version 1)
Quarter: 2012Q4

REPORT INFORMATION
  Report Type: Spontaneous
  Country: SG (occurrence: None)
  Receive Date: 20121221
  Receipt Date: 20121221
  Transmission Date: 20130627
  Serious: Yes (Other)
  Sender: FDA-Public Use
  Company Number: SG-ACCORD-015544

PATIENT
  Age: 11 Year
  Sex: Female

DRUGS (7)
  1. GEMCITABINE [Suspect]
     Indication: OSTEOSARCOMA
  2. DOCETAXEL [Suspect]
     Indication: OSTEOSARCOMA
  3. GRANULOCYTE COLONY STIMULATING FACT(GRANULOCYTE COLOY STIMULATING FACT) [Concomitant]
  4. CO-TRIMOXAZOLE (CO-TRIMOXAZOLE) [Concomitant]
  5. DEXAMETHASONE (DEXAMETHASONE) [Concomitant]
  6. ONDANSETRON (ONDANSETRON) [Concomitant]
  7. DIPHENHYDRAMINE (DIPHENHYDRAMINE) [Concomitant]

REACTIONS (7)
  - Toxic skin eruption [None]
  - Febrile neutropenia [None]
  - Diarrhoea haemorrhagic [None]
  - Mouth ulceration [None]
  - Rash pruritic [None]
  - Skin erosion [None]
  - Off label use [None]
